FAERS Safety Report 12177426 (Version 2)
Quarter: 2016Q1

REPORT INFORMATION
  Report Type: Spontaneous
  Country: FR (occurrence: FR)
  Receive Date: 20160314
  Receipt Date: 20160321
  Transmission Date: 20160526
  Serious: Yes (Hospitalization)
  Sender: FDA-Public Use
  Company Number: FR-PFIZER INC-2016147287

PATIENT
  Age: 21 Year
  Sex: Female

DRUGS (7)
  1. SOLUPRED /00016217/ [Concomitant]
     Active Substance: PREDNISOLONE
     Dosage: 40 MG, 1X/DAY
     Route: 048
     Dates: start: 20160127, end: 20160129
  2. BECOTIDE [Concomitant]
     Active Substance: BECLOMETHASONE DIPROPIONATE
     Dosage: UNK
     Route: 055
     Dates: start: 20160127, end: 20160129
  3. VOGALENE [Concomitant]
     Active Substance: METOPIMAZINE
     Dosage: UNK
     Route: 048
     Dates: start: 20160125, end: 20160129
  4. SERETIDE [Concomitant]
     Active Substance: FLUTICASONE FUROATE\SALMETEROL XINAFOATE
     Dosage: UNK
     Route: 055
     Dates: start: 20160127, end: 20160129
  5. MINIDRIL [Suspect]
     Active Substance: ETHINYL ESTRADIOL\LEVONORGESTREL
     Dosage: 1 DF (150 MICROGR/30 MICROGR), 1X/DAY
     Route: 048
     Dates: end: 20160129
  6. CLAMOXYL /00249601/ [Suspect]
     Active Substance: AMOXICILLIN
     Indication: NASOPHARYNGITIS
     Dosage: 1 G, 3X/DAY
     Route: 048
     Dates: start: 20160124, end: 20160129
  7. ARESTAL /00384303/ [Concomitant]
     Active Substance: LOPERAMIDE OXIDE
     Dosage: 1 MG, UNK
     Route: 048
     Dates: start: 20160127, end: 20160129

REACTIONS (4)
  - Rectal haemorrhage [Recovered/Resolved]
  - Klebsiella infection [Recovered/Resolved]
  - Faeces soft [Recovered/Resolved]
  - Colitis ischaemic [Recovered/Resolved]

NARRATIVE: CASE EVENT DATE: 20160127
